FAERS Safety Report 4394452-3 (Version None)
Quarter: 2004Q3

REPORT INFORMATION
  Report Type: 
  Country: None (occurrence: None)
  Receive Date: 20040709
  Receipt Date: 20040709
  Transmission Date: 20050211
  Serious: Yes (Hospitalization, Other)
  Sender: FDA-Public Use
  Company Number: None

PATIENT
  Age: 52 Year
  Sex: Male
  Weight: 89.1318 kg

DRUGS (1)
  1. CISPLATIN [Suspect]
     Indication: THERAPEUTIC PROCEDURE
     Dosage: 188 MG-IV
     Route: 042
     Dates: start: 20040525

REACTIONS (4)
  - ABDOMINAL PAIN [None]
  - CONSTIPATION [None]
  - DEHYDRATION [None]
  - URINARY RETENTION [None]
